FAERS Safety Report 15527560 (Version 1)
Quarter: 2018Q4

REPORT INFORMATION
  Report Type: Spontaneous
  Country: US (occurrence: US)
  Receive Date: 20181018
  Receipt Date: 20181018
  Transmission Date: 20190205
  Serious: No
  Sender: FDA-Public Use
  Company Number: US-JNJFOC-20181008057

PATIENT
  Sex: Male
  Weight: 83.92 kg

DRUGS (5)
  1. IBUPROFEN. [Interacting]
     Active Substance: IBUPROFEN
     Route: 065
  2. ASPIRIN. [Interacting]
     Active Substance: ASPIRIN
     Indication: PAIN
     Route: 065
  3. ADVIL [Interacting]
     Active Substance: IBUPROFEN
     Indication: PAIN
     Route: 065
  4. IBUPROFEN. [Interacting]
     Active Substance: IBUPROFEN
     Indication: PAIN
     Route: 065
  5. TREMFYA [Suspect]
     Active Substance: GUSELKUMAB
     Indication: PSORIASIS
     Route: 065

REACTIONS (4)
  - Immune system disorder [Not Recovered/Not Resolved]
  - Lip swelling [Unknown]
  - Drug interaction [Unknown]
  - Liver disorder [Unknown]
